FAERS Safety Report 9280620 (Version 3)
Quarter: 2013Q2

REPORT INFORMATION
  Report Type: Spontaneous
  Country: US (occurrence: US)
  Receive Date: 20130509
  Receipt Date: 20130523
  Transmission Date: 20140414
  Serious: Yes (Other)
  Sender: FDA-Public Use
  Company Number: US-AMGEN-USASP2013031371

PATIENT
  Age: 71 Year
  Sex: Male
  Weight: 71 kg

DRUGS (5)
  1. SENSIPAR [Suspect]
     Indication: HYPERPARATHYROIDISM SECONDARY
     Dosage: 60 MG, QD
     Route: 048
     Dates: start: 20130430, end: 20130507
  2. PANTOPRAZOLE [Suspect]
     Dosage: 40 MG, QD
     Route: 048
     Dates: start: 20121119
  3. CRESTOR [Concomitant]
  4. NIFEDIPINE ER [Concomitant]
     Dosage: 60 MG, BID
  5. LISINOPRIL [Concomitant]
     Dosage: 10 MG, QD

REACTIONS (3)
  - Cardiac failure [Unknown]
  - Disorientation [Recovering/Resolving]
  - Blood calcium abnormal [Unknown]
